FAERS Safety Report 17772858 (Version 2)
Quarter: 2020Q3

REPORT INFORMATION
  Report Type: Spontaneous
  Country: BR (occurrence: BR)
  Receive Date: 20200512
  Receipt Date: 20200818
  Transmission Date: 20201102
  Serious: Yes (Death, Other)
  Sender: FDA-Public Use
  Company Number: NVSC2020BR128472

PATIENT
  Age: 48 Year
  Sex: Female
  Weight: 76 kg

DRUGS (1)
  1. PIQRAY [Suspect]
     Active Substance: ALPELISIB
     Indication: BREAST CANCER
     Dosage: 1 DF, QD
     Route: 048
     Dates: start: 20200423

REACTIONS (8)
  - Neuralgia [Unknown]
  - Pain [Unknown]
  - Nausea [Unknown]
  - Thrombocytopenia [Not Recovered/Not Resolved]
  - Breast cancer [Fatal]
  - Gastrointestinal disorder [Unknown]
  - Malignant neoplasm progression [Fatal]
  - Constipation [Unknown]

NARRATIVE: CASE EVENT DATE: 20200603
